FAERS Safety Report 7739662-X (Version None)
Quarter: 2011Q3

REPORT INFORMATION
  Report Type: 
  Country: None (occurrence: None)
  Receive Date: 20110909
  Receipt Date: 20110905
  Transmission Date: 20111222
  Serious: Yes (Hospitalization)
  Sender: FDA-Public Use
  Company Number: DE-AMGEN-DEUSP2011041510

PATIENT
  Age: 85 Year
  Sex: Female
  Weight: 86 kg

DRUGS (5)
  1. METFORMIN [Concomitant]
     Dosage: UNK
     Route: 048
     Dates: start: 20040807, end: 20110903
  2. CLONIDINE [Concomitant]
     Dosage: UNK
     Route: 048
     Dates: start: 20090303, end: 20110903
  3. PROLIA [Suspect]
     Indication: PRODUCT USED FOR UNKNOWN INDICATION
     Dosage: 60 MG, UNK
     Route: 058
     Dates: start: 20110615
  4. LEVOTHYROXINE SODIUM [Concomitant]
     Dosage: UNK
     Route: 048
     Dates: start: 20051011, end: 20110903
  5. FORMOTEROL FUMARATE [Concomitant]
     Dosage: 12 MG, UNK
     Dates: start: 20090903, end: 20110903

REACTIONS (3)
  - SKIN INFECTION [None]
  - IMPAIRED HEALING [None]
  - WOUND [None]
